FAERS Safety Report 15337783 (Version 4)
Quarter: 2018Q4

REPORT INFORMATION
  Report Type: Spontaneous
  Country: CA (occurrence: CA)
  Receive Date: 20180831
  Receipt Date: 20181025
  Transmission Date: 20190204
  Serious: Yes (Other)
  Sender: FDA-Public Use
  Company Number: CA-ORION CORPORATION ORION PHARMA-TREX2018-2362

PATIENT
  Age: 49 Year
  Sex: Female

DRUGS (3)
  1. PLAQUENIL [Concomitant]
     Active Substance: HYDROXYCHLOROQUINE SULFATE
     Dosage: (400 MG FROM MON-FRI),
     Route: 065
     Dates: start: 2011, end: 20180802
  2. METOJECT [Concomitant]
     Active Substance: METHOTREXATE SODIUM
     Route: 065
     Dates: start: 20180301, end: 20180501
  3. METHOTREXATE (TRADE NAME UNKNOWN) [Suspect]
     Active Substance: METHOTREXATE
     Indication: PRODUCT USED FOR UNKNOWN INDICATION
     Dosage: (2.5 MG TABS X 10)
     Route: 065
     Dates: start: 20180501, end: 20180802

REACTIONS (9)
  - Therapeutic response decreased [Unknown]
  - Dizziness [Not Recovered/Not Resolved]
  - Nausea [Unknown]
  - Cough [Not Recovered/Not Resolved]
  - Tuberculosis [Not Recovered/Not Resolved]
  - Drug intolerance [Unknown]
  - Diarrhoea [Unknown]
  - Loss of personal independence in daily activities [Unknown]
  - Latent tuberculosis [Not Recovered/Not Resolved]

NARRATIVE: CASE EVENT DATE: 2018
